FAERS Safety Report 13656342 (Version 1)
Quarter: 2017Q2

REPORT INFORMATION
  Report Type: Spontaneous
  Country: CA (occurrence: CA)
  Receive Date: 20170615
  Receipt Date: 20170615
  Transmission Date: 20170830
  Serious: Yes (Hospitalization, Other)
  Sender: FDA-Public Use
  Company Number: CA-ASTRAZENECA-2017SE60199

PATIENT
  Age: 73 Year
  Sex: Female
  Weight: 61.2 kg

DRUGS (4)
  1. ACETAMINOPHEN. [Suspect]
     Active Substance: ACETAMINOPHEN
     Route: 065
  2. ASA [Concomitant]
     Active Substance: ASPIRIN
  3. METOPROLOL. [Concomitant]
     Active Substance: METOPROLOL
     Indication: HYPERTENSION
  4. ATACAND [Suspect]
     Active Substance: CANDESARTAN CILEXETIL
     Indication: HYPERTENSION
     Route: 048

REACTIONS (16)
  - Asthenia [Unknown]
  - Heart valve incompetence [Unknown]
  - Sinus tachycardia [Unknown]
  - Hyponatraemia [Unknown]
  - Decreased appetite [Unknown]
  - Hyperhidrosis [Unknown]
  - Presyncope [Unknown]
  - Dizziness [Unknown]
  - Syncope [Unknown]
  - Dehydration [Unknown]
  - Left ventricular hypertrophy [Unknown]
  - Malaise [Unknown]
  - Productive cough [Unknown]
  - Pulmonary mass [Unknown]
  - Chest discomfort [Unknown]
  - Nausea [Unknown]
